FAERS Safety Report 9126653 (Version 1)
Quarter: 2013Q1

REPORT INFORMATION
  Report Type: Report from Study
  Country: US (occurrence: US)
  Receive Date: 20130117
  Receipt Date: 20130117
  Transmission Date: 20140127
  Serious: Yes (Hospitalization)
  Sender: FDA-Public Use
  Company Number: US-ABBOTT-13P-163-1034428-00

PATIENT
  Age: 23 Year
  Sex: Female

DRUGS (1)
  1. HUMIRA [Suspect]
     Indication: PRODUCT USED FOR UNKNOWN INDICATION
     Route: 058
     Dates: start: 20100107, end: 20130103

REACTIONS (5)
  - Joint lock [Unknown]
  - Drug hypersensitivity [Unknown]
  - Rash [Unknown]
  - Nausea [Unknown]
  - Diarrhoea [Unknown]
